FAERS Safety Report 4492938-4 (Version None)
Quarter: 2004Q4

REPORT INFORMATION
  Report Type: 
  Country: None (occurrence: None)
  Receive Date: 20041104
  Receipt Date: 20041027
  Transmission Date: 20050328
  Serious: Yes (Hospitalization)
  Sender: FDA-Public Use
  Company Number: IL-MERCK-0411ISR00005

PATIENT
  Sex: Male

DRUGS (3)
  1. VIOXX [Suspect]
     Indication: BACK DISORDER
     Route: 048
     Dates: start: 20020101, end: 20031201
  2. CELECOXIB [Concomitant]
     Indication: BACK DISORDER
     Route: 048
     Dates: start: 20031201
  3. RAMIPRIL [Concomitant]
     Indication: HYPERTENSION
     Route: 048

REACTIONS (5)
  - BLOOD CHOLESTEROL INCREASED [None]
  - BLOOD PRESSURE INCREASED [None]
  - OEDEMA PERIPHERAL [None]
  - PROTEIN URINE PRESENT [None]
  - WEIGHT INCREASED [None]
